FAERS Safety Report 9346786 (Version 2)
Quarter: 2014Q1

REPORT INFORMATION
  Report Type: Spontaneous
  Country: US (occurrence: US)
  Receive Date: 20130613
  Receipt Date: 20140312
  Transmission Date: 20141002
  Serious: Yes (Hospitalization)
  Sender: FDA-Public Use
  Company Number: US-B.I. PHARMACEUTICALS,INC./RIDGEFIELD-2013-BI-16249BP

PATIENT
  Sex: Female
  Weight: 87.56 kg

DRUGS (7)
  1. PRADAXA [Suspect]
     Indication: DEEP VEIN THROMBOSIS
     Dosage: 300 MG
     Route: 065
     Dates: start: 20110415, end: 20120116
  2. LOPRESSOR [Concomitant]
     Dosage: 50 MG
     Route: 065
  3. COLCRYS [Concomitant]
     Dosage: 1.2 MG
     Route: 065
  4. BUMEX [Concomitant]
     Dosage: 1 MG
     Route: 048
  5. ALKA-SELTZER [Concomitant]
     Route: 065
  6. ALEVE [Concomitant]
     Route: 065
  7. NORVASC [Concomitant]
     Route: 065

REACTIONS (4)
  - Gastrointestinal haemorrhage [Recovered/Resolved]
  - Haemorrhagic anaemia [Unknown]
  - Vaginal haemorrhage [Unknown]
  - Iron deficiency anaemia [Unknown]
